FAERS Safety Report 10205609 (Version 1)
Quarter: 2014Q2

REPORT INFORMATION
  Report Type: Report from Study
  Country: AR (occurrence: AR)
  Receive Date: 20140529
  Receipt Date: 20140529
  Transmission Date: 20141212
  Serious: Yes (Life-Threatening, Hospitalization, Other)
  Sender: FDA-Public Use
  Company Number: PHHY2014AR065834

PATIENT
  Age: 73 Year
  Sex: Female

DRUGS (2)
  1. DIOVAN [Suspect]
     Indication: HYPERTENSION
     Dosage: 1 TABLET (160 MG), DAILY
     Route: 048
  2. DIOVAN [Suspect]
     Dosage: 0.5 TABLET (160 MG), DAILY
     Route: 048

REACTIONS (7)
  - Muscle rupture [Recovered/Resolved]
  - Peritonitis [Recovered/Resolved]
  - Gait disturbance [Unknown]
  - Weight increased [Unknown]
  - Hypotension [Unknown]
  - Wrong technique in drug usage process [Unknown]
  - Drug prescribing error [Unknown]
